FAERS Safety Report 15682439 (Version 2)
Quarter: 2018Q4

REPORT INFORMATION
  Report Type: Spontaneous
  Country: IT (occurrence: IT)
  Receive Date: 20181203
  Receipt Date: 20181210
  Transmission Date: 20190205
  Serious: Yes (Death, Other)
  Sender: FDA-Public Use
  Company Number: IT-GILEAD-2018-0377864

PATIENT
  Age: 80 Year
  Sex: Female

DRUGS (2)
  1. RIBAVIRIN. [Concomitant]
     Active Substance: RIBAVIRIN
     Indication: HEPATITIS C
     Dosage: 1000 MG, QD
     Route: 048
     Dates: start: 20171013, end: 20180105
  2. EPCLUSA [Suspect]
     Active Substance: SOFOSBUVIR\VELPATASVIR
     Indication: HEPATITIS C
     Dosage: 500 MG, QD
     Route: 048
     Dates: start: 20171013, end: 20180105

REACTIONS (5)
  - Abdominal lymphadenopathy [Fatal]
  - Coma [Fatal]
  - Confusional state [Fatal]
  - Hypercalcaemia [Fatal]
  - Gravitational oedema [Fatal]

NARRATIVE: CASE EVENT DATE: 20180502
